FAERS Safety Report 12906237 (Version 1)
Quarter: 2016Q4

REPORT INFORMATION
  Report Type: Spontaneous
  Country: US (occurrence: US)
  Receive Date: 20161101
  Receipt Date: 20161101
  Transmission Date: 20170207
  Serious: Yes (Other)
  Sender: FDA-Public Use
  Company Number: None

PATIENT
  Sex: Female
  Weight: 72.64 kg

DRUGS (6)
  1. FORTEO [Suspect]
     Active Substance: TERIPARATIDE
     Indication: OSTEOPOROSIS
     Route: 058
     Dates: start: 20160405, end: 20161031
  2. PREDNISONE. [Concomitant]
     Active Substance: PREDNISONE
  3. GLUCOSAMINE [Concomitant]
     Active Substance: GLUCOSAMINE
  4. TRIAMCINOLONE CREAM [Concomitant]
     Active Substance: TRIAMCINOLONE
  5. IRON [Concomitant]
     Active Substance: IRON
  6. CALCIUM [Concomitant]
     Active Substance: CALCIUM

REACTIONS (4)
  - Dysstasia [None]
  - Pain [None]
  - Feeling abnormal [None]
  - Asthenia [None]
